FAERS Safety Report 4354205-9 (Version None)
Quarter: 2004Q2

REPORT INFORMATION
  Report Type: 
  Country: None (occurrence: None)
  Receive Date: 20040506
  Receipt Date: 20040427
  Transmission Date: 20050107
  Serious: Yes (Other)
  Sender: FDA-Public Use
  Company Number: PHBS2004VE05849

PATIENT
  Age: 6 Year
  Sex: Female

DRUGS (4)
  1. NEORAL [Suspect]
     Indication: RENAL TRANSPLANT
     Dosage: 75 MG, BID
     Route: 048
     Dates: start: 20040406, end: 20040414
  2. FENTANYL [Suspect]
  3. GANCICLOVIR [Concomitant]
     Indication: CYTOMEGALOVIRUS ANTIBODY POSITIVE
     Dosage: 80 MG, BID
     Dates: start: 20040405
  4. SIMULECT [Concomitant]
     Dosage: 10 MG, ONCE/SINGLE
     Route: 065

REACTIONS (15)
  - ABDOMINAL DISTENSION [None]
  - ABDOMINAL PAIN [None]
  - ASCARIASIS [None]
  - BLOOD CREATININE INCREASED [None]
  - BRADYPNOEA [None]
  - COMPLEX PARTIAL SEIZURES [None]
  - DRUG LEVEL INCREASED [None]
  - DRUG TOXICITY [None]
  - HYPOXIA [None]
  - INTESTINAL OBSTRUCTION [None]
  - KIDNEY TRANSPLANT REJECTION [None]
  - NEUROTOXICITY [None]
  - PARTIAL SEIZURES WITH SECONDARY GENERALISATION [None]
  - RESPIRATORY ACIDOSIS [None]
  - SIMPLE PARTIAL SEIZURES [None]
